FAERS Safety Report 14012020 (Version 4)
Quarter: 2017Q4

REPORT INFORMATION
  Report Type: Report from Study
  Country: US (occurrence: US)
  Receive Date: 20170926
  Receipt Date: 20171019
  Transmission Date: 20180321
  Serious: Yes (Hospitalization)
  Sender: FDA-Public Use
  Company Number: US-TEVA-808658USA

PATIENT
  Age: 31 Year
  Sex: Female

DRUGS (1)
  1. COPAXONE [Suspect]
     Active Substance: GLATIRAMER ACETATE
     Indication: MULTIPLE SCLEROSIS
     Route: 058
     Dates: start: 20170915

REACTIONS (8)
  - Mydriasis [Unknown]
  - Feeling abnormal [Unknown]
  - Vomiting [Unknown]
  - Migraine [Unknown]
  - Nausea [Unknown]
  - Incoherent [Unknown]
  - Drooling [Unknown]
  - Dizziness [Unknown]

NARRATIVE: CASE EVENT DATE: 20170916
